FAERS Safety Report 8185524-6 (Version None)
Quarter: 2012Q1

REPORT INFORMATION
  Report Type: 
  Country: None (occurrence: None)
  Receive Date: 20120305
  Receipt Date: 20120223
  Transmission Date: 20120608
  Serious: Yes (Other)
  Sender: FDA-Public Use
  Company Number: FR-ROCHE-GNE315474

PATIENT
  Sex: Male
  Weight: 13.114 kg

DRUGS (1)
  1. SOMATROPIN [Suspect]
     Indication: GROWTH HORMONE DEFICIENCY
     Dosage: 0.031 MG/KG, QD
     Route: 058
     Dates: start: 20080101

REACTIONS (2)
  - ADENOIDAL HYPERTROPHY [None]
  - EAR INFECTION [None]
